FAERS Safety Report 25767653 (Version 1)
Quarter: 2025Q3

REPORT INFORMATION
  Report Type: Report from Study
  Country: US (occurrence: US)
  Receive Date: 20250905
  Receipt Date: 20250905
  Transmission Date: 20251020
  Serious: Yes (Other)
  Sender: NOVARTIS
  Company Number: US-002147023-NVSC2025US122882

PATIENT
  Age: 54 Year
  Sex: Female

DRUGS (1)
  1. SCEMBLIX [Suspect]
     Active Substance: ASCIMINIB HYDROCHLORIDE
     Indication: Chronic myeloid leukaemia
     Dosage: 40 MG, BID
     Route: 048
     Dates: start: 202506

REACTIONS (7)
  - Renal failure [Unknown]
  - Blood pressure fluctuation [Unknown]
  - Bone pain [Unknown]
  - Arthralgia [Unknown]
  - Alopecia [Unknown]
  - Constipation [Unknown]
  - Vision blurred [Unknown]

NARRATIVE: CASE EVENT DATE: 20250601
